FAERS Safety Report 18783062 (Version 2)
Quarter: 2021Q1

REPORT INFORMATION
  Report Type: Spontaneous
  Country: US (occurrence: US)
  Receive Date: 20210125
  Receipt Date: 20210212
  Transmission Date: 20210419
  Serious: No
  Sender: FDA-Public Use
  Company Number: US-JNJFOC-20210123565

PATIENT
  Age: 40 Year
  Sex: Female
  Weight: 79.9 kg

DRUGS (1)
  1. WOMENS ROGAINE UNSCENTED [Suspect]
     Active Substance: MINOXIDIL
     Indication: ALOPECIA
     Dosage: DOSE: HALF A CAPFUL
     Route: 061
     Dates: start: 20210107, end: 20210109

REACTIONS (9)
  - Eye swelling [Recovered/Resolved]
  - Hypertrichosis [Recovered/Resolved]
  - Dry skin [Recovered/Resolved]
  - Pruritus [Recovering/Resolving]
  - Application site exfoliation [Recovering/Resolving]
  - Skin fissures [Recovered/Resolved]
  - Swelling of eyelid [Recovered/Resolved]
  - Swelling face [Recovered/Resolved]
  - Application site pruritus [Recovered/Resolved]

NARRATIVE: CASE EVENT DATE: 20210109
